FAERS Safety Report 7974331-2 (Version None)
Quarter: 2011Q4

REPORT INFORMATION
  Report Type: 
  Country: None (occurrence: None)
  Receive Date: 20111209
  Receipt Date: 20111130
  Transmission Date: 20120403
  Serious: Yes (Hospitalization)
  Sender: FDA-Public Use
  Company Number: CIP11003235

PATIENT
  Age: 55 Year
  Sex: Female

DRUGS (3)
  1. SIMVASTATIN [Concomitant]
  2. ASACOL [Suspect]
     Indication: COLITIS ULCERATIVE
     Dosage: 800 MG 3 TIMES DAILY, ORAL
     Route: 048
     Dates: start: 20111108, end: 20111114
  3. VALIUM [Concomitant]

REACTIONS (8)
  - MENINGITIS [None]
  - HEADACHE [None]
  - MUSCULOSKELETAL STIFFNESS [None]
  - FATIGUE [None]
  - SPEECH DISORDER [None]
  - CONDITION AGGRAVATED [None]
  - COLITIS ULCERATIVE [None]
  - DIZZINESS [None]
